FAERS Safety Report 10815121 (Version 1)
Quarter: 2015Q1

REPORT INFORMATION
  Report Type: Spontaneous
  Country: JP (occurrence: JP)
  Receive Date: 20150218
  Receipt Date: 20150218
  Transmission Date: 20150721
  Serious: Yes (Life-Threatening)
  Sender: FDA-Public Use
  Company Number: JP-SA-2015SA018332

PATIENT
  Age: 89 Year
  Sex: Female
  Weight: 58 kg

DRUGS (10)
  1. ALLEGRA [Suspect]
     Active Substance: FEXOFENADINE HYDROCHLORIDE
     Indication: RASH
     Route: 048
     Dates: start: 20140829, end: 20140904
  2. BONALON [Concomitant]
     Active Substance: ALENDRONATE SODIUM
     Dates: start: 20130104
  3. LYRICA [Concomitant]
     Active Substance: PREGABALIN
     Dates: start: 201209, end: 20140831
  4. LASIX [Concomitant]
     Active Substance: FUROSEMIDE
     Dates: start: 201405
  5. CRESTOR [Concomitant]
     Active Substance: ROSUVASTATIN CALCIUM
  6. REMINYL /UNK/ [Concomitant]
     Dates: start: 201402, end: 20140831
  7. AMLODIN [Concomitant]
     Active Substance: AMLODIPINE BESYLATE
  8. ZYLORIC [Suspect]
     Active Substance: ALLOPURINOL
     Indication: HYPERURICAEMIA
     Route: 048
     Dates: start: 20140716, end: 20140904
  9. AVAPRO [Suspect]
     Active Substance: IRBESARTAN
     Indication: HYPERTENSION
     Route: 048
     Dates: start: 20140716, end: 20140831
  10. EDIROL [Concomitant]
     Active Substance: ELDECALCITOL
     Dates: start: 20130104

REACTIONS (1)
  - Agranulocytosis [Recovered/Resolved]

NARRATIVE: CASE EVENT DATE: 20140904
